FAERS Safety Report 4287276-9 (Version None)
Quarter: 2004Q1

REPORT INFORMATION
  Report Type: 
  Country: None (occurrence: None)
  Receive Date: 20040126
  Receipt Date: 20031119
  Transmission Date: 20041129
  Serious: No
  Sender: FDA-Public Use
  Company Number: USA030741046

PATIENT
  Age: 75 Year
  Sex: Female

DRUGS (6)
  1. FORTEO [Suspect]
     Indication: OSTEOPOROSIS
     Dosage: 20 UG/DAY
     Dates: start: 20030501, end: 20031118
  2. CELEBREX [Concomitant]
  3. FLONASE [Concomitant]
  4. CALCIUM [Concomitant]
  5. MULTIVITAMIN [Concomitant]
  6. FISH OIL [Concomitant]

REACTIONS (6)
  - BACK DISORDER [None]
  - BACK PAIN [None]
  - CONSTIPATION [None]
  - HEADACHE [None]
  - VARICOSE VEIN [None]
  - VEIN PAIN [None]
